FAERS Safety Report 19817347 (Version 1)
Quarter: 2021Q3

REPORT INFORMATION
  Report Type: Spontaneous
  Country: US (occurrence: US)
  Receive Date: 20210910
  Receipt Date: 20210910
  Transmission Date: 20211014
  Serious: No
  Sender: FDA-Public Use
  Company Number: US-3M-2021-US-005921

PATIENT
  Age: 61 Year
  Sex: Female
  Weight: 54.43 kg

DRUGS (1)
  1. PERIDEX [Suspect]
     Active Substance: CHLORHEXIDINE GLUCONATE
     Indication: PRODUCT USED FOR UNKNOWN INDICATION
     Dosage: DEEP CLEANING FOR SWELLING ALONG GUM LINE
     Route: 048
     Dates: start: 20210311, end: 20210311

REACTIONS (10)
  - Tongue erythema [Not Recovered/Not Resolved]
  - Hypophagia [Not Recovered/Not Resolved]
  - Heart rate increased [Recovered/Resolved]
  - Stomatitis [Not Recovered/Not Resolved]
  - Taste disorder [Not Recovered/Not Resolved]
  - Insomnia [Not Recovered/Not Resolved]
  - Chills [Recovered/Resolved]
  - Oral pain [Not Recovered/Not Resolved]
  - Hypersomnia [Not Recovered/Not Resolved]
  - Pyrexia [Recovered/Resolved]

NARRATIVE: CASE EVENT DATE: 20210311
